FAERS Safety Report 17600569 (Version 1)
Quarter: 2020Q1

REPORT INFORMATION
  Report Type: Spontaneous
  Country: CZ (occurrence: CZ)
  Receive Date: 20200330
  Receipt Date: 20200330
  Transmission Date: 20200409
  Serious: Yes (Hospitalization, Other)
  Sender: FDA-Public Use
  Company Number: CZ-BAUSCH-BL-2020-009186

PATIENT
  Age: 33 Year
  Sex: Male
  Weight: 83 kg

DRUGS (7)
  1. DITHIADEN [Concomitant]
     Active Substance: BISULEPIN
     Indication: ATOPY
     Route: 030
     Dates: start: 20191205, end: 20191210
  2. PREDNISON [Concomitant]
     Active Substance: PREDNISONE
     Route: 048
  3. PREDNISON [Concomitant]
     Active Substance: PREDNISONE
     Dosage: 20 MG;
     Route: 048
     Dates: start: 20191128, end: 20191202
  4. HYDROCORTISONE. [Suspect]
     Active Substance: HYDROCORTISONE
     Indication: ATOPY
     Dosage: 1 INJECTION AMPULE
     Route: 042
     Dates: start: 20191205, end: 20191210
  5. DUPIXENT [Suspect]
     Active Substance: DUPILUMAB
     Indication: DERMATITIS ATOPIC
     Dosage: PRE-FILLED SYRINGE
     Route: 058
     Dates: start: 20191121, end: 20200109
  6. LOCOID [Concomitant]
     Active Substance: HYDROCORTISONE BUTYRATE
     Indication: PRODUCT USED FOR UNKNOWN INDICATION
     Route: 047
  7. PREDNISON [Concomitant]
     Active Substance: PREDNISONE
     Indication: ATOPY
     Route: 048

REACTIONS (13)
  - Eczema [Recovering/Resolving]
  - Condition aggravated [Unknown]
  - Eyelid oedema [Unknown]
  - Paraesthesia [Unknown]
  - Face oedema [Unknown]
  - Erythema [Unknown]
  - Rash [Not Recovered/Not Resolved]
  - Pruritus [Unknown]
  - Tinea infection [Unknown]
  - Klebsiella infection [Unknown]
  - Skin abrasion [Unknown]
  - Lichenification [Unknown]
  - Staphylococcal infection [Unknown]

NARRATIVE: CASE EVENT DATE: 20191205
